FAERS Safety Report 12789386 (Version 10)
Quarter: 2017Q3

REPORT INFORMATION
  Report Type: Report from Study
  Country: US (occurrence: US)
  Receive Date: 20160928
  Receipt Date: 20170728
  Transmission Date: 20171127
  Serious: Yes (Hospitalization, Other)
  Sender: FDA-Public Use
  Company Number: US-BAYER-2016-144294

PATIENT
  Age: 71 Year
  Sex: Male
  Weight: 102.4 kg

DRUGS (7)
  1. ADEMPAS [Suspect]
     Active Substance: RIOCIGUAT
     Indication: PULMONARY HYPERTENSION
     Dosage: 1 MG, TID
     Route: 048
  2. ADEMPAS [Suspect]
     Active Substance: RIOCIGUAT
     Indication: PULMONARY HYPERTENSION
     Dosage: 1 MG, TID
     Route: 048
     Dates: start: 20160811
  3. ADEMPAS [Suspect]
     Active Substance: RIOCIGUAT
     Indication: PULMONARY HYPERTENSION
     Dosage: 1 MG, TID
     Route: 048
  4. ADEMPAS [Suspect]
     Active Substance: RIOCIGUAT
     Indication: PULMONARY HYPERTENSION
     Dosage: 1 MG, TID
  5. ADEMPAS [Suspect]
     Active Substance: RIOCIGUAT
     Indication: PULMONARY HYPERTENSION
     Dosage: 1 MG, TID
     Route: 048
  6. ADEMPAS [Suspect]
     Active Substance: RIOCIGUAT
     Indication: PULMONARY HYPERTENSION
     Dosage: UNK
     Dates: start: 20160715
  7. PRADAXA [Concomitant]
     Active Substance: DABIGATRAN ETEXILATE MESYLATE
     Dosage: UNK

REACTIONS (23)
  - Liver disorder [Unknown]
  - Fatigue [Unknown]
  - Renal disorder [Unknown]
  - Accident [Unknown]
  - Cardiac disorder [Unknown]
  - Dysstasia [Unknown]
  - Dysstasia [Recovering/Resolving]
  - Fall [Unknown]
  - Laceration [Unknown]
  - Thrombosis [Unknown]
  - Heart rate increased [Unknown]
  - Dyspnoea [Not Recovered/Not Resolved]
  - Hospitalisation [None]
  - Dyspnoea [Recovering/Resolving]
  - Contusion [Unknown]
  - Loss of consciousness [Unknown]
  - Suture insertion [Unknown]
  - Cardiac pacemaker insertion [Unknown]
  - Fall [Unknown]
  - Peripheral swelling [Recovering/Resolving]
  - Pulmonary embolism [Unknown]
  - Blood pressure increased [Recovering/Resolving]
  - Cervical vertebral fracture [Unknown]

NARRATIVE: CASE EVENT DATE: 201704
